FAERS Safety Report 6686131-4 (Version None)
Quarter: 2010Q2

REPORT INFORMATION
  Report Type: 
  Country: None (occurrence: None)
  Receive Date: 20100414
  Receipt Date: 20100322
  Transmission Date: 20101027
  Serious: Yes (Hospitalization)
  Sender: FDA-Public Use
  Company Number: D1001493

PATIENT
  Age: 69 Year
  Sex: Female

DRUGS (11)
  1. JANTOVEN              TABLETS  (WARFARIN SODIUM) [Suspect]
     Indication: DRUG USE FOR UNKNOWN INDICATION
     Dosage: 1 IN 1 D, ORAL
     Route: 048
     Dates: start: 20100126, end: 20100218
  2. LEVAQUIN [Concomitant]
  3. FLAGYL [Concomitant]
  4. SYNTHROID [Concomitant]
  5. VITAMIN D [Concomitant]
  6. DEPAKOTE ER [Concomitant]
  7. PANTOPRAZOLE SODIUM [Concomitant]
  8. LORAZEPAM [Concomitant]
  9. PERCOCET [Concomitant]
  10. TRIPLE ANTIBIOTIC OINTMENT (NEOMYCIN SULFATE, POLYMYXIN B SULFATEL, BA [Concomitant]
  11. METOPROLOL (METOPROLOL) [Concomitant]

REACTIONS (6)
  - ABNORMAL BEHAVIOUR [None]
  - CONFUSIONAL STATE [None]
  - FALL [None]
  - HAEMATOMA [None]
  - INTERNATIONAL NORMALISED RATIO INCREASED [None]
  - UPPER LIMB FRACTURE [None]
